FAERS Safety Report 21735577 (Version 4)
Quarter: 2023Q1

REPORT INFORMATION
  Report Type: Report from Study
  Country: CN (occurrence: CN)
  Receive Date: 20221215
  Receipt Date: 20230224
  Transmission Date: 20230418
  Serious: No
  Sender: FDA-Public Use
  Company Number: CN-BoehringerIngelheim-2022-BI-207145

PATIENT
  Age: 27 Year
  Sex: Female
  Weight: 54 kg

DRUGS (7)
  1. SPESOLIMAB [Suspect]
     Active Substance: SPESOLIMAB
     Indication: Pustular psoriasis
     Route: 042
     Dates: start: 20221122, end: 20221122
  2. SPESOLIMAB [Suspect]
     Active Substance: SPESOLIMAB
     Route: 042
     Dates: start: 20221130, end: 20221130
  3. TACROLIMUS [Concomitant]
     Active Substance: TACROLIMUS
     Indication: Pustular psoriasis
     Dates: start: 20221123, end: 202212
  4. IBUPROFEN SUSTATINED RELEASE CAPSULES [Concomitant]
     Indication: Costochondritis
     Dates: start: 202208
  5. RECURRENT TRIAMCINOLONE ACETATE SOLUTION [Concomitant]
     Indication: Pustular psoriasis
     Route: 061
     Dates: start: 20221201, end: 202212
  6. FLUTICASONE PROPIONATE [Concomitant]
     Active Substance: FLUTICASONE PROPIONATE
     Indication: Pustular psoriasis
     Route: 061
     Dates: start: 20221123, end: 202212
  7. MUPIROXACIN OINTMENT [Concomitant]
     Indication: Pustular psoriasis
     Route: 061
     Dates: start: 20221123, end: 202212

REACTIONS (2)
  - Myringitis [Unknown]
  - Lymphadenitis [Recovered/Resolved]

NARRATIVE: CASE EVENT DATE: 20221129
